FAERS Safety Report 9822312 (Version 1)
Quarter: 2014Q1

REPORT INFORMATION
  Report Type: Spontaneous
  Country: CA (occurrence: CA)
  Receive Date: 20140116
  Receipt Date: 20140116
  Transmission Date: 20141002
  Serious: Yes (Other)
  Sender: FDA-Public Use
  Company Number: CA-GE HEALTHCARE MEDICAL DIAGNOSTICS-OMPQ-PR-1401S-0018

PATIENT
  Age: 39 Year
  Sex: Female
  Weight: 48.6 kg

DRUGS (2)
  1. OMNIPAQUE [Suspect]
     Indication: CONSTIPATION
     Route: 042
     Dates: start: 20140107, end: 20140107
  2. OMNIPAQUE [Suspect]
     Indication: DIAGNOSTIC PROCEDURE

REACTIONS (2)
  - Sneezing [Recovered/Resolved]
  - Malaise [Recovered/Resolved]
